FAERS Safety Report 8550884-0 (Version None)
Quarter: 2012Q3

REPORT INFORMATION
  Report Type: 
  Country: None (occurrence: None)
  Receive Date: 20120730
  Receipt Date: 20120104
  Transmission Date: 20120928
  Serious: No
  Sender: FDA-Public Use
  Company Number: US-GLAXOSMITHKLINE-A0960436A

PATIENT
  Sex: Female

DRUGS (3)
  1. ZANTAC [Suspect]
     Indication: GASTRIC DISORDER
     Route: 065
  2. BLOOD PRESSURE MEDICATION [Suspect]
     Indication: BLOOD PRESSURE ABNORMAL
     Route: 065
  3. NEXIUM [Suspect]
     Indication: GASTRIC DISORDER
     Route: 065

REACTIONS (1)
  - DIZZINESS [None]
